FAERS Safety Report 5402846-X (Version None)
Quarter: 2007Q3

REPORT INFORMATION
  Report Type: 
  Country: None (occurrence: None)
  Receive Date: 20070801
  Receipt Date: 20070717
  Transmission Date: 20080115
  Serious: Yes (Hospitalization)
  Sender: FDA-Public Use
  Company Number: JP-BRISTOL-MYERS SQUIBB COMPANY-13751037

PATIENT
  Age: 67 Year
  Sex: Female

DRUGS (8)
  1. EFAVIRENZ [Suspect]
     Indication: HIV INFECTION
     Route: 048
     Dates: start: 20020930
  2. LAMIVUDINE [Suspect]
     Indication: HIV INFECTION
     Route: 048
     Dates: start: 20060418
  3. ABACAVIR SULFATE [Suspect]
     Indication: HIV INFECTION
     Route: 048
     Dates: start: 20060418
  4. BUCILLAMINE [Concomitant]
  5. CEVIMELINE HCL [Concomitant]
     Dates: start: 20040512
  6. LEVOTHYROXINE SODIUM [Concomitant]
     Dates: start: 20050405, end: 20070215
  7. PREDNISOLONE [Concomitant]
  8. SULFASALAZINE [Concomitant]

REACTIONS (4)
  - BLOOD TRIGLYCERIDES ABNORMAL [None]
  - DIABETES MELLITUS INADEQUATE CONTROL [None]
  - DIABETIC RETINOPATHY [None]
  - NEUROPATHY PERIPHERAL [None]
